FAERS Safety Report 9018823 (Version 6)
Quarter: 2016Q1

REPORT INFORMATION
  Report Type: Spontaneous
  Country: US (occurrence: US)
  Receive Date: 20130118
  Receipt Date: 20160217
  Transmission Date: 20160526
  Serious: Yes (Hospitalization, Disabling, Other)
  Sender: FDA-Public Use
  Company Number: US-009507513-1301USA006469

PATIENT
  Sex: Female
  Weight: 77.55 kg

DRUGS (3)
  1. FOSAMAX [Suspect]
     Active Substance: ALENDRONATE SODIUM
     Indication: OSTEOPOROSIS
     Dosage: 70 MG, QW
     Route: 048
     Dates: start: 1995, end: 200806
  2. ALENDRONATE SODIUM. [Suspect]
     Active Substance: ALENDRONATE SODIUM
     Indication: OSTEOPOROSIS
     Dosage: 70 MG, UNKNOWN
     Route: 048
     Dates: start: 20080617, end: 201212
  3. VITAMINS (UNSPECIFIED) [Concomitant]
     Active Substance: VITAMINS
     Indication: PRODUCT USED FOR UNKNOWN INDICATION
     Dosage: UNK, UNKNOWN
     Route: 065
     Dates: start: 1965

REACTIONS (20)
  - Fracture nonunion [Unknown]
  - Upper limb fracture [Unknown]
  - Pathological fracture [Recovered/Resolved]
  - Shoulder operation [Unknown]
  - Hip fracture [Recovered/Resolved]
  - Fall [Recovered/Resolved]
  - Fall [Unknown]
  - Upper limb fracture [Unknown]
  - Gastrooesophageal reflux disease [Unknown]
  - Breast cancer [Unknown]
  - Periarthritis [Unknown]
  - Femur fracture [Recovered/Resolved]
  - Staphylococcal infection [Recovered/Resolved]
  - Low turnover osteopathy [Unknown]
  - Deep vein thrombosis [Unknown]
  - Blood cholesterol increased [Unknown]
  - Fracture nonunion [Unknown]
  - Foot fracture [Unknown]
  - Fall [Unknown]
  - Diabetes mellitus [Unknown]

NARRATIVE: CASE EVENT DATE: 1997
